FAERS Safety Report 22398475 (Version 1)
Quarter: 2023Q2

REPORT INFORMATION
  Report Type: Other
  Country: CN (occurrence: None)
  Receive Date: 20230602
  Receipt Date: 20230602
  Transmission Date: 20230721
  Serious: Yes (Other)
  Sender: FDA-Public Use
  Company Number: CN-ROCHE-3358245

PATIENT

DRUGS (5)
  1. BEVACIZUMAB [Suspect]
     Active Substance: BEVACIZUMAB
     Indication: Hepatocellular carcinoma
     Route: 065
  2. ATEZOLIZUMAB [Suspect]
     Active Substance: ATEZOLIZUMAB
     Indication: Hepatocellular carcinoma
     Route: 065
  3. SINTILIMAB [Suspect]
     Active Substance: SINTILIMAB
     Indication: Hepatocellular carcinoma
     Route: 065
  4. CAMRELIZUMAB [Suspect]
     Active Substance: CAMRELIZUMAB
     Indication: Hepatocellular carcinoma
     Route: 065
  5. TORIPALIMAB [Suspect]
     Active Substance: TORIPALIMAB
     Indication: Hepatocellular carcinoma
     Route: 065

REACTIONS (17)
  - Hypertension [Unknown]
  - Pyrexia [Unknown]
  - Hepatic function abnormal [Unknown]
  - Cytopenia [Unknown]
  - Gastrointestinal haemorrhage [Unknown]
  - Proteinuria [Unknown]
  - Fatigue [Unknown]
  - Cough [Unknown]
  - Rash [Unknown]
  - Pruritus [Unknown]
  - Decreased appetite [Unknown]
  - Diarrhoea [Unknown]
  - Nausea [Unknown]
  - Vomiting [Unknown]
  - Hypothyroidism [Unknown]
  - Infusion related reaction [Unknown]
  - Reactive capillary endothelial proliferation [Unknown]
